FAERS Safety Report 4808634-7 (Version None)
Quarter: 2005Q4

REPORT INFORMATION
  Report Type: 
  Country: None (occurrence: None)
  Receive Date: 20051021
  Receipt Date: 20050513
  Transmission Date: 20060501
  Serious: No
  Sender: FDA-Public Use
  Company Number: DE_050515977

PATIENT
  Age: 65 Year
  Sex: Male

DRUGS (8)
  1. ZYPREXA [Suspect]
     Indication: DEPRESSION
     Dosage: 5 MG/ 2 DAY
     Dates: start: 20050425, end: 20050502
  2. ZYPREXA [Suspect]
     Indication: PSYCHOTIC DISORDER
     Dosage: 5 MG/ 2 DAY
     Dates: start: 20050425, end: 20050502
  3. METOPROLOL SUCCINATE [Concomitant]
  4. ACERBON (LISINOPIRL) [Concomitant]
  5. DISALUNIL (HYDROCHLOROTHIAZIDE) [Concomitant]
  6. DIGITOXIN TAB [Concomitant]
  7. FALITHROM (PHENPROCOUMON) [Concomitant]
  8. CITALOPRAM HYDROBROMIDE [Concomitant]

REACTIONS (2)
  - DRUG INTERACTION [None]
  - PROTHROMBIN TIME PROLONGED [None]
